FAERS Safety Report 25769486 (Version 2)
Quarter: 2025Q3

REPORT INFORMATION
  Report Type: Spontaneous
  Country: JP (occurrence: JP)
  Receive Date: 20250906
  Receipt Date: 20250917
  Transmission Date: 20251021
  Serious: Yes (Hospitalization)
  Sender: AMGEN
  Company Number: JP-AMGEN-JPNSP2024231435

PATIENT
  Age: 74 Year
  Sex: Male

DRUGS (9)
  1. EVENITY [Suspect]
     Active Substance: ROMOSOZUMAB-AQQG
     Indication: Osteoporosis
     Route: 058
     Dates: start: 20221220, end: 20230905
  2. CILOSTAZOL [Concomitant]
     Active Substance: CILOSTAZOL
  3. TULOBUTEROL [Concomitant]
     Active Substance: TULOBUTEROL
  4. LANSOPRAZOLE [Concomitant]
     Active Substance: LANSOPRAZOLE
  5. CARBIDOPA\LEVODOPA [Concomitant]
     Active Substance: CARBIDOPA\LEVODOPA
  6. ELDECALCITOL [Concomitant]
     Active Substance: ELDECALCITOL
  7. ASPARTIC ACID [Concomitant]
     Active Substance: ASPARTIC ACID
  8. DIQUAFOSOL TETRASODIUM [Concomitant]
     Active Substance: DIQUAFOSOL TETRASODIUM
  9. XALATAN [Concomitant]
     Active Substance: LATANOPROST

REACTIONS (3)
  - Stress cardiomyopathy [Unknown]
  - Choking [Unknown]
  - Cough [Unknown]

NARRATIVE: CASE EVENT DATE: 20230905
